FAERS Safety Report 17701627 (Version 2)
Quarter: 2020Q2

REPORT INFORMATION
  Report Type: Spontaneous
  Country: US (occurrence: US)
  Receive Date: 20200424
  Receipt Date: 20200508
  Transmission Date: 20200714
  Serious: Yes (Hospitalization, Other)
  Sender: FDA-Public Use
  Company Number: US-ALVOGEN-2020-ALVOGEN-108199

PATIENT
  Age: 21 Year
  Sex: Female

DRUGS (2)
  1. FENTANYL. [Suspect]
     Active Substance: FENTANYL
     Indication: EPIDURAL ANALGESIA
     Dosage: 2 MCG/ML
     Route: 042
     Dates: start: 2016, end: 2016
  2. BUPIVACAINE. [Suspect]
     Active Substance: BUPIVACAINE
     Indication: EPIDURAL ANALGESIA
     Dosage: 100 ML OF 0.25%
     Route: 042
     Dates: start: 2016, end: 2016

REACTIONS (9)
  - Seizure [Recovering/Resolving]
  - Maternal exposure during pregnancy [Unknown]
  - Wrong product administered [Unknown]
  - Tachycardia [Recovering/Resolving]
  - Hypoaesthesia oral [Recovering/Resolving]
  - Hypotension [Recovering/Resolving]
  - Incorrect route of product administration [Unknown]
  - Stupor [Recovering/Resolving]
  - Tinnitus [Recovering/Resolving]

NARRATIVE: CASE EVENT DATE: 2016
